FAERS Safety Report 23994906 (Version 1)
Quarter: 2024Q2

REPORT INFORMATION
  Report Type: Spontaneous
  Country: US (occurrence: None)
  Receive Date: 20240619
  Receipt Date: 20240619
  Transmission Date: 20240716
  Serious: Yes (Hospitalization)
  Sender: FDA-Public Use
  Company Number: None

PATIENT
  Age: 70 Year
  Sex: Male
  Weight: 94.9 kg

DRUGS (1)
  1. CISPLATIN [Suspect]
     Active Substance: CISPLATIN

REACTIONS (10)
  - Oropharyngeal pain [None]
  - Dysphagia [None]
  - Productive cough [None]
  - Nausea [None]
  - Sputum increased [None]
  - Lymphocyte count decreased [None]
  - Renal disorder [None]
  - SARS-CoV-2 test positive [None]
  - Dyspnoea exertional [None]
  - Malaise [None]

NARRATIVE: CASE EVENT DATE: 20240404
